FAERS Safety Report 25507729 (Version 11)
Quarter: 2025Q4

REPORT INFORMATION
  Report Type: Spontaneous
  Country: AR (occurrence: AR)
  Receive Date: 20250703
  Receipt Date: 20251008
  Transmission Date: 20260118
  Serious: Yes (Hospitalization, Other)
  Sender: SANDOZ
  Company Number: AR-SANDOZ-SDZ2025AR044800

PATIENT
  Age: 68 Year
  Sex: Male
  Weight: 81 kg

DRUGS (2)
  1. BOSENTAN [Suspect]
     Active Substance: BOSENTAN
     Indication: Product used for unknown indication
     Dosage: UNK
     Route: 065
  2. TREPROSTINIL SODIUM [Suspect]
     Active Substance: TREPROSTINIL SODIUM
     Indication: Pulmonary hypertension
     Dosage: 5 NG/KG/MIN, CONT (INFUSION )
     Route: 058
     Dates: start: 20250617

REACTIONS (27)
  - Hospitalisation [Unknown]
  - Liver operation [Unknown]
  - Feeling of body temperature change [Unknown]
  - Sleep disorder [Unknown]
  - Fear [Unknown]
  - Pain [Unknown]
  - Nasopharyngitis [Not Recovered/Not Resolved]
  - Food intolerance [Unknown]
  - Procedural pain [Unknown]
  - Oxygen saturation decreased [Unknown]
  - Pulmonary pain [Unknown]
  - Liver disorder [Unknown]
  - Infusion site mass [Unknown]
  - Injection site haematoma [Unknown]
  - Injection site haemorrhage [Unknown]
  - Chest pain [Recovered/Resolved]
  - Pruritus [Unknown]
  - Dyspnoea [Not Recovered/Not Resolved]
  - Headache [Recovered/Resolved]
  - Vomiting [Unknown]
  - Diarrhoea [Unknown]
  - Infusion site pain [Unknown]
  - Injection site pain [Recovered/Resolved]
  - Drug ineffective [Unknown]
  - Wrong technique in product usage process [Unknown]
  - Wrong technique in product usage process [Unknown]
  - Product substitution issue [Unknown]

NARRATIVE: CASE EVENT DATE: 20250601
